FAERS Safety Report 7377689-0 (Version None)
Quarter: 2011Q1

REPORT INFORMATION
  Report Type: 
  Country: None (occurrence: None)
  Receive Date: 20110328
  Receipt Date: 20110314
  Transmission Date: 20110831
  Serious: Yes (Other)
  Sender: FDA-Public Use
  Company Number: CA-JNJFOC-20110305659

PATIENT
  Age: 38 Year
  Sex: Female
  Weight: 81.65 kg

DRUGS (1)
  1. BENYLIN EXTRA STRENGTH COLD, MUCUS AND PHLEGM [Suspect]
     Indication: NASOPHARYNGITIS
     Dosage: ONE TABLET PER HOUR FOR 6 HOURS
     Route: 048

REACTIONS (8)
  - JOINT SWELLING [None]
  - INAPPROPRIATE SCHEDULE OF DRUG ADMINISTRATION [None]
  - ABASIA [None]
  - THROMBOSIS [None]
  - PRURITUS [None]
  - INCORRECT DOSE ADMINISTERED [None]
  - ACTIVITIES OF DAILY LIVING IMPAIRED [None]
  - OEDEMA PERIPHERAL [None]
